FAERS Safety Report 7708021-8 (Version None)
Quarter: 2011Q3

REPORT INFORMATION
  Report Type: 
  Country: None (occurrence: None)
  Receive Date: 20110824
  Receipt Date: 20110815
  Transmission Date: 20111222
  Serious: Yes (Other)
  Sender: FDA-Public Use
  Company Number: US-ASTRAZENECA-2011SE48875

PATIENT
  Age: 43 Year
  Sex: Female

DRUGS (1)
  1. SEROQUEL [Suspect]
     Dosage: SEVEN TABLETS DAILY
     Route: 048

REACTIONS (3)
  - CONVULSION [None]
  - DRUG DOSE OMISSION [None]
  - VISUAL IMPAIRMENT [None]
